FAERS Safety Report 22180065 (Version 2)
Quarter: 2023Q2

REPORT INFORMATION
  Report Type: Spontaneous
  Country: JP (occurrence: JP)
  Receive Date: 20230406
  Receipt Date: 20230414
  Transmission Date: 20230721
  Serious: Yes (Other)
  Sender: FDA-Public Use
  Company Number: JP-UNITED THERAPEUTICS-UNT-2022-023138

PATIENT
  Age: 18 Year
  Sex: Male

DRUGS (10)
  1. UNITUXIN [Suspect]
     Active Substance: DINUTUXIMAB
     Indication: Neuroblastoma
     Dosage: 17.5 MG/M2, CYCLICAL (CYCLE 1)
     Route: 041
     Dates: start: 20220926, end: 2022
  2. UNITUXIN [Suspect]
     Active Substance: DINUTUXIMAB
     Dosage: 17.5 MG/M2, CYCLICAL (CYCLE 2)
     Route: 041
     Dates: start: 20221114, end: 20221117
  3. UNITUXIN [Suspect]
     Active Substance: DINUTUXIMAB
     Dosage: 17.5 MG/M2, CYCLICAL (CYCLE 3)
     Route: 041
     Dates: start: 20221212, end: 20221215
  4. UNITUXIN [Suspect]
     Active Substance: DINUTUXIMAB
     Dosage: 17.5 MG/M2, CYCLICAL (CYCLE 4)
     Route: 041
     Dates: start: 20230117, end: 20230120
  5. UNITUXIN [Suspect]
     Active Substance: DINUTUXIMAB
     Dosage: UNK, CYCLICAL (CYCLE 5)
     Route: 041
     Dates: start: 20230213, end: 20230216
  6. UNITUXIN [Suspect]
     Active Substance: DINUTUXIMAB
     Dosage: 17.5 MG/M2, CYCLICAL (CYCLE 6)
     Route: 041
     Dates: start: 20230320, end: 20230323
  7. TECELEUKIN [Suspect]
     Active Substance: TECELEUKIN
     Indication: Neuroblastoma
     Dosage: UNK
     Route: 065
     Dates: end: 20230118
  8. TECELEUKIN [Suspect]
     Active Substance: TECELEUKIN
     Dosage: UNK
     Route: 065
     Dates: end: 20230324
  9. GRANULOCYTE COLONY-STIMULATING FACTOR NOS [Concomitant]
     Active Substance: GRANULOCYTE COLONY-STIMULATING FACTOR NOS
     Indication: Neuroblastoma
     Dosage: UNK
     Route: 065
     Dates: start: 20230210, end: 20230219
  10. GRANULOCYTE COLONY-STIMULATING FACTOR NOS [Concomitant]
     Active Substance: GRANULOCYTE COLONY-STIMULATING FACTOR NOS
     Dosage: UNK
     Route: 065
     Dates: start: 20230221, end: 20230222

REACTIONS (33)
  - Capillary leak syndrome [Recovered/Resolved]
  - Capillary leak syndrome [Recovered/Resolved]
  - Capillary leak syndrome [Recovering/Resolving]
  - Neuroblastoma [Not Recovered/Not Resolved]
  - C-reactive protein increased [Recovered/Resolved]
  - Pyrexia [Recovered/Resolved]
  - Fibrin D dimer increased [Recovered/Resolved]
  - Blood lactate dehydrogenase increased [Recovered/Resolved]
  - COVID-19 [Recovering/Resolving]
  - C-reactive protein increased [Recovering/Resolving]
  - Weight increased [Recovered/Resolved]
  - Blood albumin decreased [Recovered/Resolved]
  - Oedema [Recovered/Resolved]
  - Tremor [Recovered/Resolved]
  - C-reactive protein increased [Recovering/Resolving]
  - Pyrexia [Recovered/Resolved]
  - Fibrin D dimer increased [Recovering/Resolving]
  - Specific gravity urine increased [Recovered/Resolved]
  - Vision blurred [Recovered/Resolved]
  - C-reactive protein increased [Recovering/Resolving]
  - Fibrin D dimer increased [Recovering/Resolving]
  - Photophobia [Recovering/Resolving]
  - Pyrexia [Recovered/Resolved]
  - C-reactive protein increased [Recovering/Resolving]
  - Fibrin D dimer increased [Recovering/Resolving]
  - C-reactive protein increased [Recovering/Resolving]
  - C-reactive protein increased [Recovering/Resolving]
  - Fibrin D dimer increased [Recovering/Resolving]
  - Pyrexia [Recovering/Resolving]
  - Weight increased [Recovered/Resolved]
  - Hypoalbuminaemia [Recovering/Resolving]
  - Oedema [Recovering/Resolving]
  - Oxygen saturation decreased [Recovering/Resolving]

NARRATIVE: CASE EVENT DATE: 20220101
